FAERS Safety Report 4539469-0 (Version None)
Quarter: 2004Q4

REPORT INFORMATION
  Report Type: 
  Country: None (occurrence: None)
  Receive Date: 20041222
  Receipt Date: 20041217
  Transmission Date: 20050328
  Serious: Yes (Hospitalization)
  Sender: FDA-Public Use
  Company Number: TNZFR200400115

PATIENT
  Age: 42 Year
  Sex: Male

DRUGS (3)
  1. INNOHEP (INJECTION) (TINZAPARINE SODIUM INJECTION) [Suspect]
     Indication: ANTICOAGULANT THERAPY
     Dosage: 12000 IU (12000 IU, ONCE DAILY), SUBCUTANEOUS
     Route: 058
     Dates: start: 20040901, end: 20041003
  2. INNOHEP (INJECTION) (TINZAPARINE SODIUM INJECTION) [Suspect]
     Indication: ANTICOAGULANT THERAPY
     Dosage: 12000 IU (12000 IU, ONCE DAILY), SUBCUTANEOUS
     Route: 058
     Dates: start: 20040915
  3. PREVISCAN (FLUINIDIONE) (TABLETS) [Concomitant]

REACTIONS (16)
  - ABDOMINAL PAIN UPPER [None]
  - ASTHENIA [None]
  - CHILLS [None]
  - DRUG TOLERANCE DECREASED [None]
  - FATIGUE [None]
  - FEELING DRUNK [None]
  - HAEMATEMESIS [None]
  - HEADACHE [None]
  - HYPERHIDROSIS [None]
  - HYPOTENSION [None]
  - LOSS OF CONSCIOUSNESS [None]
  - MALAISE [None]
  - NAUSEA [None]
  - OESOPHAGEAL VARICES HAEMORRHAGE [None]
  - SKIN DISORDER [None]
  - VOMITING [None]
